FAERS Safety Report 9573841 (Version 2)
Quarter: 2013Q4

REPORT INFORMATION
  Report Type: Spontaneous
  Country: GB (occurrence: GB)
  Receive Date: 20131001
  Receipt Date: 20131011
  Transmission Date: 20140711
  Serious: Yes (Other)
  Sender: FDA-Public Use
  Company Number: GB-PFIZER INC-2013275011

PATIENT
  Age: 21 Year
  Sex: Female

DRUGS (12)
  1. VENLAFAXINE HCL [Suspect]
     Dosage: 150 MG, DAILY
     Route: 048
     Dates: start: 20130202, end: 20130712
  2. CLOZARIL [Suspect]
     Indication: SCHIZOPHRENIA
     Dosage: UNK
     Route: 048
     Dates: start: 20130227
  3. CLOZARIL [Suspect]
     Dosage: 37.5 MG, UNK
     Route: 048
     Dates: start: 20130305, end: 20130312
  4. CLOZARIL [Suspect]
     Dosage: UNK
  5. CLOZARIL [Suspect]
     Dosage: 300 MG, UNK
     Route: 048
  6. IBUPROFEN [Concomitant]
     Indication: PAIN
     Dosage: 400 MG, AS NEEDED
     Route: 048
  7. OLANZAPINE [Concomitant]
     Dosage: 5 MG, AS NEEDED
     Route: 048
  8. SERTRALINE [Concomitant]
     Dosage: 200 MG, 1X/DAY
  9. OMEPRAZOLE [Concomitant]
     Dosage: 20 MG, 1X/DAY
  10. CLONAZEPAM [Concomitant]
     Dosage: 1 MG, 1X/DAY
  11. BECONASE [Concomitant]
     Dosage: UNK
  12. COLPERMIN [Concomitant]
     Dosage: 2 DF, 2X/DAY

REACTIONS (5)
  - Electrocardiogram QT prolonged [Recovered/Resolved]
  - Accidental exposure to product [Unknown]
  - Platelet count increased [Unknown]
  - Chest discomfort [Unknown]
  - Feeling of body temperature change [Unknown]
